FAERS Safety Report 4853051-7 (Version None)
Quarter: 2005Q4

REPORT INFORMATION
  Report Type: 
  Country: None (occurrence: None)
  Receive Date: 20051212
  Receipt Date: 20051125
  Transmission Date: 20060501
  Serious: Yes (Other)
  Sender: FDA-Public Use
  Company Number: URSO-2005-048

PATIENT
  Age: 48 Year
  Sex: Male

DRUGS (1)
  1. URSODEOXYCHOLIC ACID [Suspect]
     Dosage: 400 MG
     Dates: start: 20040422, end: 20040423

REACTIONS (2)
  - LIVER DISORDER [None]
  - RASH PAPULAR [None]
